FAERS Safety Report 4917875-X (Version None)
Quarter: 2006Q1

REPORT INFORMATION
  Report Type: 
  Country: None (occurrence: None)
  Receive Date: 20060215
  Receipt Date: 20060202
  Transmission Date: 20060701
  Serious: Yes (Hospitalization)
  Sender: FDA-Public Use
  Company Number: 2005171554

PATIENT
  Age: 22 Month
  Sex: Male
  Weight: 10.4 kg

DRUGS (2)
  1. ZITHROMAX [Suspect]
     Indication: NASOPHARYNGITIS
     Dosage: 1 IN 1 D, ORAL
     Route: 048
     Dates: start: 20051207, end: 20051209
  2. AMOXICILLIN [Suspect]
     Indication: NASOPHARYNGITIS
     Dosage: ORAL
     Route: 048
     Dates: start: 20051209, end: 20051210

REACTIONS (6)
  - BODY TEMPERATURE DECREASED [None]
  - CSF PRESSURE INCREASED [None]
  - DYSSTASIA [None]
  - INTERMITTENT CLAUDICATION [None]
  - MENINGITIS [None]
  - MYELITIS [None]
